FAERS Safety Report 18410607 (Version 1)
Quarter: 2020Q4

REPORT INFORMATION
  Report Type: Spontaneous
  Country: AR (occurrence: AR)
  Receive Date: 20201021
  Receipt Date: 20201021
  Transmission Date: 20210114
  Serious: Yes (Life-Threatening, Hospitalization, Other)
  Sender: FDA-Public Use
  Company Number: NVSC2020AR282974

PATIENT
  Age: 74 Year
  Sex: Female

DRUGS (3)
  1. LETROZOLE. [Suspect]
     Active Substance: LETROZOLE
     Indication: PRODUCT USED FOR UNKNOWN INDICATION
     Route: 065
  2. IBRANCE [Suspect]
     Active Substance: PALBOCICLIB
     Indication: BREAST CANCER METASTATIC
     Dosage: 75 MG, QD (SCHEME 3X1)
     Route: 065
     Dates: start: 20171018
  3. CAPECITABINA [Suspect]
     Active Substance: CAPECITABINE
     Indication: PRODUCT USED FOR UNKNOWN INDICATION
     Route: 065

REACTIONS (13)
  - Mouth injury [Unknown]
  - Dehydration [Unknown]
  - Malnutrition [Unknown]
  - General physical health deterioration [Unknown]
  - Renal failure [Unknown]
  - Hepatic failure [Unknown]
  - Feeding disorder [Unknown]
  - Diarrhoea [Unknown]
  - Hepatic pain [Unknown]
  - Enzyme level decreased [Unknown]
  - Drug intolerance [Unknown]
  - Laboratory test abnormal [Unknown]
  - Drug ineffective [Unknown]

NARRATIVE: CASE EVENT DATE: 20201016
